FAERS Safety Report 6931756-1 (Version None)
Quarter: 2010Q3

REPORT INFORMATION
  Report Type: 
  Country: None (occurrence: None)
  Receive Date: 20100819
  Receipt Date: 20100810
  Transmission Date: 20110219
  Serious: Yes (Death)
  Sender: FDA-Public Use
  Company Number: DK-PFIZER INC-2010101876

PATIENT

DRUGS (1)
  1. MINPROSTIN [Suspect]
     Indication: LABOUR INDUCTION
     Dosage: UNK
     Route: 064
     Dates: start: 20100101

REACTIONS (1)
  - DEATH NEONATAL [None]
